FAERS Safety Report 9118284 (Version 1)
Quarter: 2013Q1

REPORT INFORMATION
  Report Type: Spontaneous
  Country: US (occurrence: None)
  Receive Date: 20130221
  Receipt Date: 20130221
  Transmission Date: 20140127
  Serious: Yes (Life-Threatening, Hospitalization)
  Sender: FDA-Public Use
  Company Number: None

PATIENT
  Age: 61 Year
  Sex: Female
  Weight: 68.95 kg

DRUGS (1)
  1. LEVOTHYROXINE [Suspect]
     Indication: THYROID DISORDER
     Dosage: 1   DAY
     Dates: start: 20120702

REACTIONS (13)
  - Temperature intolerance [None]
  - Hyperhidrosis [None]
  - Headache [None]
  - Nervousness [None]
  - Muscular weakness [None]
  - Cardiac arrest [None]
  - Alopecia [None]
  - Convulsion [None]
  - Rash [None]
  - Wheezing [None]
  - Emotional disorder [None]
  - Gastrointestinal disorder [None]
  - Blood pressure [None]
